FAERS Safety Report 19906027 (Version 1)
Quarter: 2021Q3

REPORT INFORMATION
  Report Type: Spontaneous
  Country: US (occurrence: US)
  Receive Date: 20210930
  Receipt Date: 20210930
  Transmission Date: 20211014
  Serious: Yes (Hospitalization, Other)
  Sender: FDA-Public Use
  Company Number: None

PATIENT
  Age: 0 Day
  Sex: Female
  Weight: 2.3 kg

DRUGS (2)
  1. LEVOTHYROXINE. [Suspect]
     Active Substance: LEVOTHYROXINE
  2. ZYPREXA [Suspect]
     Active Substance: OLANZAPINE

REACTIONS (3)
  - Neonatal respiratory distress syndrome [None]
  - Selective eating disorder [None]
  - Premature baby [None]

NARRATIVE: CASE EVENT DATE: 20191109
